FAERS Safety Report 6009949-X (Version None)
Quarter: 2008Q4

REPORT INFORMATION
  Report Type: 
  Country: None (occurrence: None)
  Receive Date: 20081218
  Receipt Date: 20081119
  Transmission Date: 20090506
  Serious: No
  Sender: FDA-Public Use
  Company Number: US-BAYER-200838964NA

PATIENT
  Age: 66 Year
  Sex: Female
  Weight: 103 kg

DRUGS (3)
  1. MAGNEVIST [Suspect]
     Indication: NUCLEAR MAGNETIC RESONANCE IMAGING
     Dosage: TOTAL DAILY DOSE: 20 ML  UNIT DOSE: 50 ML
     Route: 042
     Dates: start: 20081119, end: 20081119
  2. VICODIN [Concomitant]
     Dates: start: 20081119
  3. PSORIASIS MEDICATION [Concomitant]
     Indication: PSORIASIS

REACTIONS (2)
  - EYE IRRITATION [None]
  - EYE PRURITUS [None]
